FAERS Safety Report 17447966 (Version 1)
Quarter: 2020Q1

REPORT INFORMATION
  Report Type: Report from Study
  Country: None (occurrence: CO)
  Receive Date: 20200222
  Receipt Date: 20200222
  Transmission Date: 20200409
  Serious: Yes (Other)
  Sender: FDA-Public Use
  Company Number: CO-ABBVIE-20K-036-3289003-00

PATIENT
  Age: 42 Year
  Sex: Female
  Weight: 63 kg

DRUGS (4)
  1. LEVONORGESTREL. [Concomitant]
     Active Substance: LEVONORGESTREL
     Indication: VAGINAL HAEMORRHAGE
     Route: 048
     Dates: start: 2019
  2. TANESAN [Concomitant]
     Indication: VAGINAL HAEMORRHAGE
     Route: 048
  3. HUMIRA [Suspect]
     Active Substance: ADALIMUMAB
     Indication: ANKYLOSING SPONDYLITIS
     Route: 058
     Dates: start: 20170516
  4. HUMIRA [Suspect]
     Active Substance: ADALIMUMAB
     Indication: ANKYLOSING SPONDYLITIS
     Route: 058

REACTIONS (4)
  - Body height decreased [Not Recovered/Not Resolved]
  - Muscle spasms [Not Recovered/Not Resolved]
  - Vaginal haemorrhage [Not Recovered/Not Resolved]
  - Cough [Not Recovered/Not Resolved]

NARRATIVE: CASE EVENT DATE: 201909
